FAERS Safety Report 20898452 (Version 1)
Quarter: 2022Q2

REPORT INFORMATION
  Report Type: Spontaneous
  Country: GB (occurrence: GB)
  Receive Date: 20220601
  Receipt Date: 20220601
  Transmission Date: 20220720
  Serious: Yes (Hospitalization, Other)
  Sender: FDA-Public Use
  Company Number: GB-RP-022962

PATIENT
  Age: 16 Year
  Sex: Female

DRUGS (2)
  1. METRONIDAZOLE [Suspect]
     Active Substance: METRONIDAZOLE
     Indication: Product used for unknown indication
     Dosage: 400 MILLIGRAM (TIME INTERVAL)
     Route: 065
  2. AMOXICILLIN [Concomitant]
     Active Substance: AMOXICILLIN
     Indication: Product used for unknown indication
     Dosage: 500 MILLIGRAM (TIME INTERVAL:)
     Route: 065

REACTIONS (8)
  - Hepatitis [Unknown]
  - Hepatotoxicity [Unknown]
  - Blood albumin decreased [Unknown]
  - Blood fibrinogen increased [Unknown]
  - Hypersensitivity [Unknown]
  - Serum ferritin increased [Unknown]
  - Alpha 1 foetoprotein increased [Unknown]
  - Coagulopathy [Unknown]
